FAERS Safety Report 4900018-6 (Version None)
Quarter: 2006Q1

REPORT INFORMATION
  Report Type: 
  Country: None (occurrence: None)
  Receive Date: 20060203
  Receipt Date: 20060125
  Transmission Date: 20060701
  Serious: Yes (Hospitalization)
  Sender: FDA-Public Use
  Company Number: 2006UW01515

PATIENT
  Sex: Female

DRUGS (12)
  1. LOSEC [Suspect]
     Indication: OESOPHAGITIS
     Route: 048
     Dates: start: 19890101
  2. DIDROCAL [Concomitant]
     Indication: OSTEOPOROSIS
  3. DIAZEPAM [Concomitant]
     Indication: MUSCLE RELAXANT THERAPY
  4. SALBUTAMOL [Concomitant]
     Indication: ASTHMA
     Route: 055
  5. CITALOPRAM HYDROBROMIDE [Concomitant]
     Indication: DEPRESSION
  6. ATACAND [Concomitant]
     Indication: HYPERTENSION
     Route: 048
     Dates: start: 20050101
  7. WARFARIN [Concomitant]
  8. ANTIINFLAMMATORIES [Concomitant]
  9. MULTI-VITAMINS [Concomitant]
  10. WILD SALMON FISH OIL [Concomitant]
  11. GLUCOSAMINE [Concomitant]
  12. GARLIC [Concomitant]

REACTIONS (18)
  - CEREBROVASCULAR ACCIDENT [None]
  - CHEST DISCOMFORT [None]
  - CONSTIPATION [None]
  - DIARRHOEA [None]
  - DRUG INEFFECTIVE [None]
  - DYSPHAGIA [None]
  - DYSPNOEA [None]
  - EMOTIONAL DISORDER [None]
  - FATIGUE [None]
  - HERNIA [None]
  - MALAISE [None]
  - MUSCLE SPASMS [None]
  - NAUSEA [None]
  - PARAESTHESIA [None]
  - SHOULDER PAIN [None]
  - SLUGGISHNESS [None]
  - THROAT TIGHTNESS [None]
  - WEIGHT DECREASED [None]
